FAERS Safety Report 16885375 (Version 1)
Quarter: 2019Q4

REPORT INFORMATION
  Report Type: Spontaneous
  Country: FR (occurrence: FR)
  Receive Date: 20191004
  Receipt Date: 20191004
  Transmission Date: 20200122
  Serious: Yes (Other)
  Sender: FDA-Public Use
  Company Number: FR-PFIZER INC-2019423217

PATIENT
  Age: 68 Year
  Sex: Female

DRUGS (2)
  1. ACUPAN [Suspect]
     Active Substance: NEFOPAM HYDROCHLORIDE
     Dosage: UNK
  2. DALACINE [Suspect]
     Active Substance: CLINDAMYCIN
     Indication: GINGIVITIS
     Dosage: 600 MG, 1X/DAY

REACTIONS (5)
  - Off label use [Unknown]
  - Cardiac failure [Unknown]
  - Product use issue [Unknown]
  - Back pain [Unknown]
  - Movement disorder [Unknown]
